FAERS Safety Report 6527861-4 (Version None)
Quarter: 2009Q4

REPORT INFORMATION
  Report Type: 
  Country: None (occurrence: None)
  Receive Date: 20091231
  Receipt Date: 20091223
  Transmission Date: 20100525
  Serious: Yes (Life-Threatening, Hospitalization)
  Sender: FDA-Public Use
  Company Number: 2009-03831

PATIENT
  Age: 63 Year
  Sex: Male

DRUGS (3)
  1. VELCADE [Suspect]
     Indication: MULTIPLE MYELOMA
     Dosage: 2.5 MG, CYCLIC, INTRAVENOUS
     Route: 042
     Dates: start: 20090904, end: 20090914
  2. DOXORUBICIN HCL [Suspect]
     Indication: MULTIPLE MYELOMA
     Dosage: 18 MG, INTRAVENOUS
     Route: 042
     Dates: start: 20090904, end: 20090907
  3. DEXAMETHASONE TAB [Suspect]
     Indication: MULTIPLE MYELOMA
     Dosage: 40 MG, CYCLIC, ORAL
     Route: 048
     Dates: start: 20090904, end: 20090914

REACTIONS (7)
  - CARDIAC ARREST [None]
  - DIARRHOEA [None]
  - GENERAL PHYSICAL HEALTH DETERIORATION [None]
  - HYPOKALAEMIA [None]
  - HYPOVOLAEMIA [None]
  - NEUTROPENIC SEPSIS [None]
  - VOMITING [None]
